FAERS Safety Report 7024537-4 (Version None)
Quarter: 2010Q4

REPORT INFORMATION
  Report Type: 
  Country: None (occurrence: None)
  Receive Date: 20101001
  Receipt Date: 20100923
  Transmission Date: 20110411
  Serious: Yes (Other)
  Sender: FDA-Public Use
  Company Number: B0676984A

PATIENT

DRUGS (2)
  1. CLAMOXYL [Suspect]
     Indication: PRODUCT USED FOR UNKNOWN INDICATION
     Route: 048
     Dates: start: 20070301
  2. BREXIN [Suspect]
     Indication: PRODUCT USED FOR UNKNOWN INDICATION
     Route: 048
     Dates: start: 20070301

REACTIONS (4)
  - ANGIOEDEMA [None]
  - FEELING HOT [None]
  - PRURITUS [None]
  - URTICARIA [None]
